FAERS Safety Report 9822437 (Version 1)
Quarter: 2014Q1

REPORT INFORMATION
  Report Type: Spontaneous
  Country: US (occurrence: US)
  Receive Date: 20140116
  Receipt Date: 20140116
  Transmission Date: 20141002
  Serious: No
  Sender: FDA-Public Use
  Company Number: US-ORAPHARMA-20110510787

PATIENT
  Sex: 0

DRUGS (2)
  1. ARESTIN [Suspect]
     Indication: GINGIVITIS
     Dosage: 4 CARTRIDGES
     Route: 048
     Dates: start: 20110516, end: 20110516
  2. MULTIVITAMINS [Concomitant]
     Route: 065

REACTIONS (4)
  - Ear pain [Not Recovered/Not Resolved]
  - Oropharyngeal pain [Not Recovered/Not Resolved]
  - Erythema [Not Recovered/Not Resolved]
  - Pain in jaw [Not Recovered/Not Resolved]
